FAERS Safety Report 13176948 (Version 1)
Quarter: 2017Q1

REPORT INFORMATION
  Report Type: Spontaneous
  Country: HR (occurrence: HR)
  Receive Date: 20170201
  Receipt Date: 20170201
  Transmission Date: 20170428
  Serious: Yes (Hospitalization, Other)
  Sender: FDA-Public Use
  Company Number: HR-AMGEN-HRVNI2017016043

PATIENT

DRUGS (1)
  1. ENBREL [Suspect]
     Active Substance: ETANERCEPT
     Indication: JUVENILE IDIOPATHIC ARTHRITIS
     Dosage: 0.4MG/KG TWICE WEEKLY OR 0.8MG/KG ONCE WEEKLY
     Route: 058

REACTIONS (3)
  - Splenomegaly [Recovered/Resolved]
  - Epstein-Barr virus infection [Recovered/Resolved]
  - Hypersplenism [Recovered/Resolved]
